FAERS Safety Report 9398671 (Version 1)
Quarter: 2013Q3

REPORT INFORMATION
  Report Type: Spontaneous
  Country: FR (occurrence: FR)
  Receive Date: 20130712
  Receipt Date: 20130712
  Transmission Date: 20140515
  Serious: Yes (Hospitalization)
  Sender: FDA-Public Use
  Company Number: PHHY2013FR050101

PATIENT
  Age: 79 Year
  Sex: Female

DRUGS (5)
  1. AFINITOR [Suspect]
     Indication: BREAST CANCER METASTATIC
     Dosage: 10 MG, DAILY
     Route: 048
     Dates: start: 20130328
  2. AFINITOR [Suspect]
     Dosage: 5 MG, DAILY
     Route: 048
     Dates: start: 20130418
  3. INDAPAMIDE [Suspect]
     Indication: HYPERTENSION
     Route: 048
  4. FASLODEX/FULVESTRANT [Suspect]
     Indication: BREAST CANCER METASTATIC
     Dosage: 2 DF
     Route: 030
     Dates: start: 20130123
  5. KERLONE [Suspect]
     Indication: HYPERTENSION
     Dosage: 20 MG
     Route: 048

REACTIONS (2)
  - Arthralgia [Not Recovered/Not Resolved]
  - Aphthous stomatitis [Unknown]
